FAERS Safety Report 6418421-4 (Version None)
Quarter: 2009Q4

REPORT INFORMATION
  Report Type: 
  Country: None (occurrence: None)
  Receive Date: 20091021
  Receipt Date: 20090713
  Transmission Date: 20100525
  Serious: No
  Sender: FDA-Public Use
  Company Number: ALL1-2009-01909

PATIENT
  Age: 7 Year
  Sex: Male
  Weight: 32.7 kg

DRUGS (2)
  1. VYVANSE [Suspect]
     Indication: ATTENTION DEFICIT/HYPERACTIVITY DISORDER
     Dosage: 50 MG, 1X/DAY:QD, ORAL : 60 MG, 1X/DAY:QD, ORAL
     Route: 048
     Dates: start: 20081001, end: 20090101
  2. VYVANSE [Suspect]
     Indication: ATTENTION DEFICIT/HYPERACTIVITY DISORDER
     Dosage: 50 MG, 1X/DAY:QD, ORAL : 60 MG, 1X/DAY:QD, ORAL
     Route: 048
     Dates: start: 20090101

REACTIONS (9)
  - AGGRESSION [None]
  - AGITATION [None]
  - BLOOD PRESSURE FLUCTUATION [None]
  - FEELINGS OF WORTHLESSNESS [None]
  - GROWTH RETARDATION [None]
  - HEART RATE INCREASED [None]
  - HOSTILITY [None]
  - VISUAL IMPAIRMENT [None]
  - WEIGHT GAIN POOR [None]
